FAERS Safety Report 6276235-2 (Version None)
Quarter: 2009Q3

REPORT INFORMATION
  Report Type: 
  Country: None (occurrence: None)
  Receive Date: 20090722
  Receipt Date: 20090713
  Transmission Date: 20100115
  Serious: Yes (Life-Threatening, Hospitalization)
  Sender: FDA-Public Use
  Company Number: FR-TEVA-202610USA

PATIENT
  Sex: Female

DRUGS (11)
  1. BISELECT [Suspect]
     Route: 061
  2. ADALIMUMAB [Suspect]
     Dosage: 40 MG SQ EVERY 15 DAYS
     Route: 058
     Dates: start: 20030201
  3. LEFLUNOMIDE [Suspect]
     Route: 048
     Dates: start: 20021201
  4. PREDNISONE [Suspect]
     Route: 048
  5. VALPROATE SEMISODIUM [Suspect]
     Dosage: 2 DOSAGE FORMS 1D
     Route: 048
  6. ALENDRONATE SODIUM [Suspect]
     Dosage: 0.1429 DOSAGE FORM (1 IN 1 WEEK)
     Route: 048
  7. MIRTAZAPINE [Suspect]
     Dosage: 3 DOSAGE FORMS, (3 DOSAGE FORMS 1 DAY)
     Route: 048
  8. GABAPENTIN [Suspect]
     Dosage: 3 DOSAGE FORMS, 1 D
     Route: 048
  9. PERINDOPRIL [Suspect]
     Route: 048
  10. TRAMADOL HYDROCHLORIDE [Suspect]
     Dosage: 2 DOSAGE FORM 1D
     Route: 048
  11. OMEPRAZOLE [Suspect]
     Dosage: 1DOSAGE FORM
     Route: 048

REACTIONS (1)
  - PULMONARY EMBOLISM [None]
